FAERS Safety Report 15209528 (Version 1)
Quarter: 2018Q3

REPORT INFORMATION
  Report Type: Spontaneous
  Country: JP (occurrence: JP)
  Receive Date: 20180727
  Receipt Date: 20180727
  Transmission Date: 20181010
  Serious: Yes (Hospitalization, Other)
  Sender: FDA-Public Use
  Company Number: JP-TOLMAR, INC.-TOLG20180409

PATIENT
  Age: 63 Year
  Sex: Male

DRUGS (2)
  1. GLYCERIN. [Concomitant]
     Active Substance: GLYCERIN
     Indication: BRAIN OEDEMA
     Dosage: 400 ML
     Route: 065
  2. BETAMETHASONE DIPROPIONATE. [Suspect]
     Active Substance: BETAMETHASONE DIPROPIONATE
     Indication: BRAIN OEDEMA
     Dosage: 4 MG
     Route: 042

REACTIONS (5)
  - Quadriparesis [Recovered/Resolved with Sequelae]
  - Dysaesthesia [Not Recovered/Not Resolved]
  - Dyspnoea [Recovered/Resolved]
  - Respiratory failure [Recovered/Resolved]
  - Muscular weakness [Recovered/Resolved]
